FAERS Safety Report 6304117-6 (Version None)
Quarter: 2009Q3

REPORT INFORMATION
  Report Type: 
  Country: None (occurrence: None)
  Receive Date: 20090806
  Receipt Date: 20090724
  Transmission Date: 20100115
  Serious: Yes (Death, Hospitalization)
  Sender: FDA-Public Use
  Company Number: 2009AL003558

PATIENT
  Age: 80 Year
  Sex: Male

DRUGS (21)
  1. DIGOXIN [Suspect]
     Dosage: 0.125MG, DAILY, PO
     Route: 048
     Dates: start: 20080214
  2. TYLENOL (CAPLET) [Concomitant]
  3. REGLAN [Concomitant]
  4. ZOCOR [Concomitant]
  5. LASIX [Concomitant]
  6. HYDROCHLOROTHIAZIDE [Concomitant]
  7. ASPIRIN [Concomitant]
  8. COREG [Concomitant]
  9. ENALAPRIL MALEATE [Concomitant]
  10. GLUCOVANCE [Concomitant]
  11. SIMVASTATIN [Concomitant]
  12. SPIRONOLACTONE [Concomitant]
  13. COUMADIN [Concomitant]
  14. METOPROLOL SUCCINATE [Concomitant]
  15. CARVEDILOL [Concomitant]
  16. CHERATUSSIN [Concomitant]
  17. EXELON [Concomitant]
  18. NYSTATIN [Concomitant]
  19. LEVAQUIN [Concomitant]
  20. NITROGLYCERIN [Concomitant]
  21. METOCLOPRAM [Concomitant]

REACTIONS (18)
  - ASTHENIA [None]
  - BLOOD CREATINE PHOSPHOKINASE MB INCREASED [None]
  - BRADYCARDIA [None]
  - CHEST PAIN [None]
  - CLOSTRIDIUM DIFFICILE COLITIS [None]
  - DECREASED APPETITE [None]
  - DIARRHOEA [None]
  - ECONOMIC PROBLEM [None]
  - FAILURE TO THRIVE [None]
  - HYPOGLYCAEMIA [None]
  - HYPONATRAEMIA [None]
  - MULTIPLE INJURIES [None]
  - NECROSIS [None]
  - PNEUMONIA [None]
  - RETROPERITONEAL HAEMORRHAGE [None]
  - SURGERY [None]
  - TROPONIN INCREASED [None]
  - WEIGHT DECREASED [None]
